FAERS Safety Report 5259049-1 (Version None)
Quarter: 2007Q1

REPORT INFORMATION
  Report Type: 
  Country: None (occurrence: None)
  Receive Date: 20070305
  Receipt Date: 20070221
  Transmission Date: 20070707
  Serious: Yes (Hospitalization)
  Sender: FDA-Public Use
  Company Number: 2007PV030436

PATIENT
  Age: 61 Year
  Sex: Female
  Weight: 92.0802 kg

DRUGS (11)
  1. BYETTA [Suspect]
     Indication: DIABETES MELLITUS NON-INSULIN-DEPENDENT
     Dosage: SEE IMAGE
     Route: 058
     Dates: start: 20060501, end: 20061001
  2. BYETTA [Suspect]
     Indication: DIABETES MELLITUS NON-INSULIN-DEPENDENT
     Dosage: SEE IMAGE
     Route: 058
     Dates: start: 20070110, end: 20070206
  3. BYETTA [Suspect]
     Indication: DIABETES MELLITUS NON-INSULIN-DEPENDENT
     Dosage: SEE IMAGE
     Route: 058
     Dates: start: 20070207
  4. GLYBURIDE [Concomitant]
  5. ACTOS [Concomitant]
  6. GLUCOPHAGE [Concomitant]
  7. PLAVIX [Concomitant]
  8. ZETIA [Concomitant]
  9. CRESTOR [Concomitant]
  10. COREG [Concomitant]
  11. QUINAPRIL/HCTZ [Concomitant]

REACTIONS (5)
  - BLOOD GLUCOSE INCREASED [None]
  - CLOSTRIDIAL INFECTION [None]
  - DECREASED APPETITE [None]
  - INFLUENZA LIKE ILLNESS [None]
  - NAUSEA [None]
